FAERS Safety Report 11946420 (Version 2)
Quarter: 2016Q1

REPORT INFORMATION
  Report Type: Spontaneous
  Country: US (occurrence: US)
  Receive Date: 20160125
  Receipt Date: 20160304
  Transmission Date: 20160526
  Serious: No
  Sender: FDA-Public Use
  Company Number: US-JNJFOC-20160100449

PATIENT
  Age: 68 Year
  Sex: Female
  Weight: 50.35 kg

DRUGS (4)
  1. MENS ROGAINE EXTRA STRENGTH [Suspect]
     Active Substance: MINOXIDIL
     Indication: LICHEN PLANUS
     Route: 061
  2. MENS ROGAINE EXTRA STRENGTH [Suspect]
     Active Substance: MINOXIDIL
     Indication: LICHEN PLANUS
     Dosage: 3X THE RECOMMENDED AMOUNT, ONCE A DAY
     Route: 061
  3. MENS ROGAINE EXTRA STRENGTH [Suspect]
     Active Substance: MINOXIDIL
     Indication: LICHEN PLANUS
     Dosage: 3X THE RECOMMENDED AMOUNT, ONCE A DAY
     Route: 061
  4. MENS ROGAINE EXTRA STRENGTH [Suspect]
     Active Substance: MINOXIDIL
     Indication: LICHEN PLANUS
     Route: 061

REACTIONS (6)
  - Tachycardia [Recovered/Resolved]
  - Off label use [Recovered/Resolved]
  - Incorrect dose administered [Recovered/Resolved]
  - Product use issue [Recovered/Resolved]
  - Drug administered at inappropriate site [Recovered/Resolved]
  - Wrong patient received medication [Recovered/Resolved]

NARRATIVE: CASE EVENT DATE: 2015
